FAERS Safety Report 7803028-4 (Version None)
Quarter: 2011Q4

REPORT INFORMATION
  Report Type: 
  Country: None (occurrence: None)
  Receive Date: 20111007
  Receipt Date: 20110926
  Transmission Date: 20120403
  Serious: Yes (Hospitalization)
  Sender: FDA-Public Use
  Company Number: US-BAYER-2011-011016

PATIENT
  Age: 31 Year
  Sex: Female
  Weight: 55.782 kg

DRUGS (6)
  1. YAZ [Suspect]
     Indication: CONTRACEPTION
     Dosage: UNK
     Dates: start: 20080201, end: 20090901
  2. KEFLEX [Concomitant]
     Indication: URINARY TRACT INFECTION
     Dosage: 500 MG, TID
     Dates: start: 20080919, end: 20080901
  3. ROXICET [Concomitant]
     Dosage: UNK
     Dates: start: 20080919
  4. ARIXTRA [Concomitant]
     Dosage: UNK UNK, QD
     Route: 058
     Dates: start: 20080919
  5. DIAZEPAM [Concomitant]
     Dosage: UNK
     Dates: start: 20080919
  6. TRI-SPRINTEC [Concomitant]
     Dosage: UNK
     Dates: start: 20080523

REACTIONS (6)
  - INJURY [None]
  - GENERAL PHYSICAL HEALTH DETERIORATION [None]
  - PAIN [None]
  - DEEP VEIN THROMBOSIS [None]
  - ANXIETY [None]
  - EMOTIONAL DISTRESS [None]
